FAERS Safety Report 17277915 (Version 2)
Quarter: 2020Q4

REPORT INFORMATION
  Report Type: Report from Study
  Country: US (occurrence: US)
  Receive Date: 20200116
  Receipt Date: 20201015
  Transmission Date: 20210113
  Serious: Yes (Hospitalization)
  Sender: FDA-Public Use
  Company Number: NVSC2020US007236

PATIENT
  Age: 76 Year
  Sex: Female

DRUGS (1)
  1. ENTRESTO [Suspect]
     Active Substance: SACUBITRIL\VALSARTAN
     Indication: CARDIAC FAILURE
     Dosage: 50 MG, BID (24 MG SACUBITRIL, 26 MG VALSARTAN)
     Route: 048

REACTIONS (6)
  - Hypotension [Unknown]
  - Neck pain [Recovered/Resolved]
  - Dizziness postural [Recovered/Resolved]
  - Cardiac failure [Recovering/Resolving]
  - Fatigue [Unknown]
  - Memory impairment [Unknown]

NARRATIVE: CASE EVENT DATE: 20110108
